FAERS Safety Report 8596721-X (Version None)
Quarter: 2012Q3

REPORT INFORMATION
  Report Type: 
  Country: None (occurrence: None)
  Receive Date: 20120815
  Receipt Date: 20120802
  Transmission Date: 20120928
  Serious: No
  Sender: FDA-Public Use
  Company Number: US-ASTRAZENECA-2008UW09127

PATIENT
  Age: 71 Year
  Sex: Male
  Weight: 75.7 kg

DRUGS (5)
  1. CRESTOR [Suspect]
     Route: 048
  2. CRESTOR [Suspect]
     Route: 048
  3. CRESTOR [Suspect]
     Route: 048
  4. CRESTOR [Suspect]
     Indication: BLOOD CHOLESTEROL
     Route: 048
  5. LIPITOR [Concomitant]

REACTIONS (3)
  - MYALGIA [None]
  - BLOOD CHOLESTEROL DECREASED [None]
  - OFF LABEL USE [None]
